FAERS Safety Report 9130831 (Version 4)
Quarter: 2013Q2

REPORT INFORMATION
  Report Type: Spontaneous
  Country: US (occurrence: US)
  Receive Date: 20130301
  Receipt Date: 20130507
  Transmission Date: 20140414
  Serious: Yes (Hospitalization, Other)
  Sender: FDA-Public Use
  Company Number: US-PFIZER INC-2013069828

PATIENT
  Age: 73 Year
  Sex: Female
  Weight: 62.59 kg

DRUGS (12)
  1. PREMPRO [Suspect]
     Indication: THYROID DISORDER
     Dosage: 1 DF (0.3MG/ 1.5MG), 1X/DAY AT NIGHT
  2. TRAMADOL HCL [Suspect]
     Indication: PAIN
     Dosage: UNK
  3. OXYCODONE HYDROCHLORIDE [Suspect]
     Indication: PAIN
     Dosage: UNK
  4. TYLENOL W/CODEINE NO. 3 [Suspect]
     Indication: PAIN
     Dosage: UNK
  5. VICODIN [Suspect]
     Indication: PAIN
     Dosage: UNK
  6. CARDIZEM [Concomitant]
     Dosage: UNK
  7. DIAZEPAM [Concomitant]
     Dosage: UNK
  8. HYDROCHLOROTHIAZIDE [Concomitant]
     Indication: BLOOD PRESSURE ABNORMAL
     Dosage: UNK
  9. WARFARIN [Concomitant]
     Indication: ANTICOAGULANT THERAPY
     Dosage: UNK
  10. METOPROLOL [Concomitant]
     Indication: CARDIAC DISORDER
     Dosage: UNK
  11. METOPROLOL TARTRATE [Concomitant]
     Indication: CARDIAC DISORDER
     Dosage: UNK
  12. ZOCOR [Concomitant]
     Dosage: UNK

REACTIONS (12)
  - Neoplasm malignant [Unknown]
  - Arthropathy [Unknown]
  - Arthritis [Recovering/Resolving]
  - Insomnia [Recovering/Resolving]
  - Malaise [Unknown]
  - Nausea [Unknown]
  - Vomiting [Unknown]
  - Feeling abnormal [Recovering/Resolving]
  - Haematocrit abnormal [Unknown]
  - Full blood count decreased [Unknown]
  - Red blood cell count decreased [Unknown]
  - Neutrophil count decreased [Unknown]
